FAERS Safety Report 7570560-0 (Version None)
Quarter: 2011Q2

REPORT INFORMATION
  Report Type: 
  Country: None (occurrence: None)
  Receive Date: 20110620
  Receipt Date: 20110614
  Transmission Date: 20111010
  Serious: Yes (Life-Threatening, Hospitalization)
  Sender: FDA-Public Use
  Company Number: 2011SP021532

PATIENT
  Age: 54 Year
  Sex: Male

DRUGS (13)
  1. MIRTAZAPINE [Suspect]
     Indication: DEPRESSION
     Dosage: 15;30;7.5 MG, QD, PO
     Route: 048
     Dates: start: 20100930, end: 20101027
  2. MIRTAZAPINE [Suspect]
     Indication: DEPRESSION
     Dosage: 15;30;7.5 MG, QD, PO
     Route: 048
     Dates: start: 20110516
  3. MIRTAZAPINE [Suspect]
     Indication: DEPRESSION
     Dosage: 15;30;7.5 MG, QD, PO
     Route: 048
     Dates: start: 20100809, end: 20100901
  4. MIRTAZAPINE [Suspect]
     Indication: DEPRESSION
     Dosage: 15;30;7.5 MG, QD, PO
     Route: 048
     Dates: start: 20100909, end: 20100915
  5. MIRTAZAPINE [Suspect]
     Indication: DEPRESSION
     Dosage: 15;30;7.5 MG, QD, PO
     Route: 048
     Dates: start: 20100902, end: 20100908
  6. LEVOTHYROXINE SODIUM HYDRATE [Concomitant]
  7. AMOXAPINE [Suspect]
     Indication: DEPRESSION
     Dosage: 25;50 MG, QD, PO
     Route: 048
     Dates: end: 20101006
  8. AMOXAPINE [Suspect]
     Indication: DEPRESSION
     Dosage: 25;50 MG, QD, PO
     Route: 048
     Dates: start: 20101007, end: 20101027
  9. CYMBALTA [Suspect]
     Indication: DEPRESSION
     Dosage: 20;P40;60 MG, QD, PO
     Route: 048
     Dates: start: 20100803
  10. CYMBALTA [Suspect]
     Indication: DEPRESSION
     Dosage: 20;P40;60 MG, QD, PO
     Route: 048
     Dates: start: 20100821, end: 20100930
  11. CYMBALTA [Suspect]
     Indication: DEPRESSION
     Dosage: 20;P40;60 MG, QD, PO
     Route: 048
     Dates: end: 20100820
  12. ESTAZOLAM [Suspect]
     Indication: SLEEP DISORDER
     Dosage: 2 MG, QD, PO
     Route: 048
     Dates: start: 20100803
  13. LEVOFLOXACIN HYDRATE [Concomitant]

REACTIONS (5)
  - DYSURIA [None]
  - RENAL IMPAIRMENT [None]
  - HAEMODIALYSIS [None]
  - PYREXIA [None]
  - URINARY RETENTION [None]
